FAERS Safety Report 6284870-0 (Version None)
Quarter: 2009Q3

REPORT INFORMATION
  Report Type: 
  Country: None (occurrence: None)
  Receive Date: 20090723
  Receipt Date: 20090720
  Transmission Date: 20100115
  Serious: Yes (Hospitalization)
  Sender: FDA-Public Use
  Company Number: CIP09001934

PATIENT
  Age: 25 Year
  Sex: Female

DRUGS (2)
  1. ASACOL [Suspect]
     Indication: COLITIS ULCERATIVE
     Dosage: 300 MG THREE TIMES DAILY, UNKNOWN
  2. CORTISTEROID NOS (CORTICOSTEROID NOS) [Concomitant]

REACTIONS (7)
  - ANTINEUTROPHIL CYTOPLASMIC ANTIBODY POSITIVE [None]
  - BREATH SOUNDS ABNORMAL [None]
  - COUGH [None]
  - LUNG NEOPLASM [None]
  - PULMONARY CAVITATION [None]
  - PYREXIA [None]
  - RESPIRATORY FREMITUS [None]
